FAERS Safety Report 4349223-0 (Version None)
Quarter: 2004Q2

REPORT INFORMATION
  Report Type: 
  Country: None (occurrence: None)
  Receive Date: 20040427
  Receipt Date: 20040216
  Transmission Date: 20050107
  Serious: Yes (Hospitalization)
  Sender: FDA-Public Use
  Company Number: 000780

PATIENT
  Age: 54 Year
  Sex: Male
  Weight: 74.4 kg

DRUGS (5)
  1. ZEVALIN [Suspect]
     Indication: NON-HODGKIN'S LYMPHOMA
     Dosage: 250 MG/M2, SINGLE, RITUXAN DOSE 1, INTRAVENOUS; SEE IMAGE
     Route: 042
     Dates: start: 20031211, end: 20031211
  2. ZEVALIN [Suspect]
     Indication: NON-HODGKIN'S LYMPHOMA
     Dosage: 250 MG/M2, SINGLE, RITUXAN DOSE 1, INTRAVENOUS; SEE IMAGE
     Route: 042
     Dates: start: 20031218, end: 20031218
  3. ZEVALIN [Suspect]
     Indication: NON-HODGKIN'S LYMPHOMA
     Dosage: 250 MG/M2, SINGLE, RITUXAN DOSE 1, INTRAVENOUS; SEE IMAGE
     Route: 042
     Dates: start: 20031218, end: 20031218
  4. ACETAMINOPHEN [Concomitant]
  5. CLEMASTINE (CLEMASTINE) [Concomitant]

REACTIONS (3)
  - GASTROENTERITIS [None]
  - NEUTROPENIA [None]
  - PYREXIA [None]
